FAERS Safety Report 6690487-6 (Version None)
Quarter: 2010Q2

REPORT INFORMATION
  Report Type: 
  Country: None (occurrence: None)
  Receive Date: 20100419
  Receipt Date: 20100419
  Transmission Date: 20101027
  Serious: Yes (Life-Threatening, Hospitalization)
  Sender: FDA-Public Use
  Company Number: None

PATIENT
  Sex: Female
  Weight: 45.3597 kg

DRUGS (3)
  1. NORTRIPTYLINE HCL [Suspect]
     Indication: PAIN
     Dosage: 10 MGM DAILY AT H.S. ORAL
     Route: 048
     Dates: start: 20100129
  2. NORTRIPTYLINE HCL [Suspect]
     Indication: PAIN
     Dosage: 10 MGM DAILY AT H.S. ORAL
     Route: 048
     Dates: start: 20100130
  3. NORTRIPTYLINE HCL [Suspect]
     Indication: PAIN
     Dosage: 10 MGM DAILY AT H.S. ORAL
     Route: 048
     Dates: start: 20100131

REACTIONS (4)
  - FATIGUE [None]
  - LOSS OF CONSCIOUSNESS [None]
  - MANIA [None]
  - THINKING ABNORMAL [None]
